FAERS Safety Report 5288824-2 (Version None)
Quarter: 2007Q2

REPORT INFORMATION
  Report Type: 
  Country: None (occurrence: None)
  Receive Date: 20070405
  Receipt Date: 20070327
  Transmission Date: 20071010
  Serious: Yes (Death, Hospitalization, Other)
  Sender: FDA-Public Use
  Company Number: DE-ABBOTT-07P-062-0358670-00

PATIENT
  Sex: Male
  Weight: 73.5 kg

DRUGS (24)
  1. ZEMPLAR [Suspect]
     Indication: HYPERPARATHYROIDISM SECONDARY
     Dosage: EVERY TUESDAY, FRIDAY, SATURDAY
     Dates: start: 20060831, end: 20070120
  2. ACETYLSALICYLIC ACID SRT [Concomitant]
     Indication: DRUG USE FOR UNKNOWN INDICATION
     Dates: start: 20000830
  3. CPS PULVER [Concomitant]
     Indication: DRUG USE FOR UNKNOWN INDICATION
     Dates: start: 20000830
  4. DARBEPOETIN ALFA [Concomitant]
     Indication: DRUG USE FOR UNKNOWN INDICATION
     Route: 042
     Dates: start: 20031231
  5. PRAVASTATIN STADA [Concomitant]
     Indication: DRUG USE FOR UNKNOWN INDICATION
     Dates: start: 20050423
  6. IRBESARTAN [Concomitant]
     Indication: DRUG USE FOR UNKNOWN INDICATION
     Dates: start: 20050531
  7. DIGITOXIN TAB [Concomitant]
     Indication: DRUG USE FOR UNKNOWN INDICATION
     Dates: start: 20050614
  8. MOLSIDOMINE [Concomitant]
     Indication: DRUG USE FOR UNKNOWN INDICATION
     Dates: start: 20061106
  9. OMEPRAZOLE [Concomitant]
     Indication: DRUG USE FOR UNKNOWN INDICATION
     Dates: start: 20050901
  10. COLECALCIFEROL [Concomitant]
     Indication: DRUG USE FOR UNKNOWN INDICATION
     Dosage: DURING HEMODIALYSIS
     Dates: start: 20051022
  11. GLYCERYL TRINITRATE [Concomitant]
     Indication: DRUG USE FOR UNKNOWN INDICATION
     Dates: start: 20051231
  12. SEVELAMER HYDROCHLORIDE [Concomitant]
     Indication: DRUG USE FOR UNKNOWN INDICATION
     Dosage: 1-2-1-0-0
     Dates: start: 20060106
  13. DIPYRONE TAB [Concomitant]
     Indication: PAIN
     Dates: start: 20060119
  14. NCP AL [Concomitant]
     Indication: DRUG USE FOR UNKNOWN INDICATION
     Dosage: BEFORE MEALTIME
     Dates: start: 20060411
  15. ADDMT SOFT CAPSULES [Concomitant]
     Indication: DRUG USE FOR UNKNOWN INDICATION
     Dates: start: 20060418
  16. DICLOFENAC SODIUM [Concomitant]
     Indication: DRUG USE FOR UNKNOWN INDICATION
     Dosage: 50
     Dates: start: 20060608
  17. ZODIN [Concomitant]
     Indication: LIPIDS INCREASED
     Dates: start: 20060831
  18. ISDN 60 RET V CT [Concomitant]
     Indication: DRUG USE FOR UNKNOWN INDICATION
     Dates: start: 20060919
  19. ISOKET 5 [Concomitant]
     Indication: DRUG USE FOR UNKNOWN INDICATION
     Dosage: UNDER TONGUE PRIOR TO GETTING UP
     Route: 060
     Dates: start: 20060921
  20. CLOPIDOGREL BISULFATE [Concomitant]
     Indication: DRUG USE FOR UNKNOWN INDICATION
     Dates: start: 20061106
  21. FERRIC SODIUM GLUCONATE COMPLEX [Concomitant]
     Indication: DRUG USE FOR UNKNOWN INDICATION
     Route: 042
     Dates: start: 20061130, end: 20061214
  22. PENTAERITHRITYL TETRANITRATE [Concomitant]
     Indication: DRUG USE FOR UNKNOWN INDICATION
     Dates: start: 20061123
  23. MIMPARA [Concomitant]
     Indication: DRUG USE FOR UNKNOWN INDICATION
     Dosage: WITH MEALS
     Dates: start: 20061130
  24. METOPROLOL SUCCINATE [Concomitant]
     Indication: DRUG USE FOR UNKNOWN INDICATION
     Dates: start: 20070118

REACTIONS (6)
  - ACUTE CORONARY SYNDROME [None]
  - ANGINA PECTORIS [None]
  - CARDIAC DISORDER [None]
  - CORONARY ARTERY DISEASE [None]
  - CORONARY ARTERY OCCLUSION [None]
  - MYOCARDIAL INFARCTION [None]
